FAERS Safety Report 17314573 (Version 1)
Quarter: 2020Q1

REPORT INFORMATION
  Report Type: Spontaneous
  Country: US (occurrence: US)
  Receive Date: 20200108
  Receipt Date: 20200108
  Transmission Date: 20200409
  Serious: Yes (Death, Hospitalization)
  Sender: FDA-Public Use
  Company Number: None

PATIENT
  Sex: Female
  Weight: 143.3 kg

DRUGS (6)
  1. ONCASPAR [Concomitant]
     Active Substance: PEGASPARGASE
  2. DEXAMETHASONE. [Concomitant]
     Active Substance: DEXAMETHASONE
  3. CYTARABINE. [Suspect]
     Active Substance: CYTARABINE
  4. DAUNORUBICIN [Concomitant]
     Active Substance: DAUNORUBICIN
  5. VINCRISTINE SULFATE. [Concomitant]
     Active Substance: VINCRISTINE SULFATE
  6. METHOTREXATE. [Concomitant]
     Active Substance: METHOTREXATE

REACTIONS (1)
  - Adverse event [None]

NARRATIVE: CASE EVENT DATE: 20191020
